FAERS Safety Report 25823843 (Version 1)
Quarter: 2025Q3

REPORT INFORMATION
  Report Type: Spontaneous
  Country: PR (occurrence: PR)
  Receive Date: 20250919
  Receipt Date: 20250919
  Transmission Date: 20251021
  Serious: No
  Sender: ANI
  Company Number: PR-ANIPHARMA-2025-PR-000030

PATIENT
  Age: 32 Year
  Sex: Female
  Weight: 60.33 kg

DRUGS (5)
  1. CORTICOTROPIN [Suspect]
     Active Substance: CORTICOTROPIN
     Indication: Optic neuritis
     Route: 058
     Dates: start: 202504
  2. PENICILLIN G BENZATHINE [Concomitant]
     Active Substance: PENICILLIN G BENZATHINE
     Route: 030
  3. Tysabri Intravenous Concentrate 300 [Concomitant]
     Route: 042
  4. UNSPECIFIED INGREDIENT [Concomitant]
     Active Substance: UNSPECIFIED INGREDIENT
  5. Loratadine Oral Capsule 10 MG [Concomitant]
     Route: 048

REACTIONS (2)
  - Fatigue [Unknown]
  - Injection site pain [Unknown]
